FAERS Safety Report 6280295-2 (Version None)
Quarter: 2009Q3

REPORT INFORMATION
  Report Type: 
  Country: None (occurrence: None)
  Receive Date: 20090723
  Receipt Date: 20090720
  Transmission Date: 20100115
  Serious: Yes (Hospitalization)
  Sender: FDA-Public Use
  Company Number: BR-ASTRAZENECA-2009UW20910

PATIENT
  Sex: Female
  Weight: 68 kg

DRUGS (6)
  1. CRESTOR [Suspect]
     Route: 048
     Dates: start: 20080404
  2. EUTHYROX [Concomitant]
     Route: 048
     Dates: start: 20050101
  3. SUSTRATE [Concomitant]
     Route: 048
     Dates: start: 20080404
  4. ASPIRIN [Concomitant]
     Route: 048
     Dates: start: 20080404
  5. NIMOTOP [Concomitant]
     Route: 048
     Dates: start: 20080404
  6. RITMONORM [Concomitant]
     Route: 048
     Dates: start: 20080404

REACTIONS (1)
  - CEREBROVASCULAR ACCIDENT [None]
